FAERS Safety Report 10165516 (Version 2)
Quarter: 2014Q2

REPORT INFORMATION
  Report Type: Spontaneous
  Country: US (occurrence: US)
  Receive Date: 20140510
  Receipt Date: 20140510
  Transmission Date: 20141212
  Serious: No
  Sender: FDA-Public Use
  Company Number: US-BRISTOL-MYERS SQUIBB COMPANY-19844695

PATIENT
  Age: 68 Year
  Sex: Male
  Weight: 68.48 kg

DRUGS (6)
  1. BYDUREON [Suspect]
     Indication: TYPE 2 DIABETES MELLITUS
     Route: 058
     Dates: start: 20130917
  2. ACTOS [Suspect]
  3. LISINOPRIL [Concomitant]
  4. ASA [Concomitant]
  5. VITAMIN D [Concomitant]
  6. ATORVASTATIN [Concomitant]

REACTIONS (6)
  - Injection site nodule [Unknown]
  - Weight decreased [Unknown]
  - Decreased appetite [Unknown]
  - Constipation [Unknown]
  - Oesophageal disorder [Unknown]
  - Injection site haemorrhage [Unknown]
